FAERS Safety Report 5306396-0 (Version None)
Quarter: 2007Q2

REPORT INFORMATION
  Report Type: 
  Country: None (occurrence: None)
  Receive Date: 20070424
  Receipt Date: 20070410
  Transmission Date: 20071010
  Serious: Yes (Other)
  Sender: FDA-Public Use
  Company Number: CA-GENENTECH-220342

PATIENT
  Sex: Female
  Weight: 66 kg

DRUGS (2)
  1. HERCEPTIN [Suspect]
     Indication: BREAST CANCER
     Dosage: 544 MG, UNK
     Route: 042
     Dates: start: 20050816
  2. EPIRUBICIN [Concomitant]
     Indication: DRUG USE FOR UNKNOWN INDICATION
     Dates: start: 20050322, end: 20050705

REACTIONS (1)
  - ANGIOPATHY [None]
